FAERS Safety Report 22083678 (Version 4)
Quarter: 2023Q2

REPORT INFORMATION
  Report Type: Spontaneous
  Country: US (occurrence: US)
  Receive Date: 20230310
  Receipt Date: 20230410
  Transmission Date: 20230721
  Serious: Yes (Hospitalization)
  Sender: FDA-Public Use
  Company Number: US-PFIZER INC-202300097165

PATIENT
  Age: 94 Year
  Sex: Female

DRUGS (14)
  1. FUROSEMIDE [Interacting]
     Active Substance: FUROSEMIDE
     Dosage: UNK
  2. ELIQUIS [Interacting]
     Active Substance: APIXABAN
     Dosage: UNK
  3. GABAPENTIN [Interacting]
     Active Substance: GABAPENTIN
     Dosage: UNK
  4. ROSUVASTATIN [Interacting]
     Active Substance: ROSUVASTATIN
     Dosage: UNK
  5. DOCUSATE [Interacting]
     Active Substance: DOCUSATE
     Dosage: UNK
  6. PREDNISONE [Interacting]
     Active Substance: PREDNISONE
     Dosage: UNK
  7. VITAMIN B12 [Interacting]
     Active Substance: CYANOCOBALAMIN
     Dosage: UNK
  8. VITAMIN D NOS [Interacting]
     Active Substance: VITAMIN D NOS
     Dosage: UNK
  9. CALCIUM ACETATE [Interacting]
     Active Substance: CALCIUM ACETATE
     Dosage: UNK
  10. NEBIVOLOL [Interacting]
     Active Substance: NEBIVOLOL
     Dosage: UNK
  11. DIGOXIN [Interacting]
     Active Substance: DIGOXIN
     Dosage: UNK
  12. FAMOTIDINE [Interacting]
     Active Substance: FAMOTIDINE
     Dosage: UNK
  13. ASPIRIN [Interacting]
     Active Substance: ASPIRIN
     Dosage: UNK
  14. RISEDRONATE SODIUM [Interacting]
     Active Substance: RISEDRONATE SODIUM
     Dosage: UNK

REACTIONS (3)
  - Drug interaction [Recovered/Resolved]
  - Tremor [Recovered/Resolved]
  - Compulsions [Recovered/Resolved]
